FAERS Safety Report 18065583 (Version 1)
Quarter: 2020Q3

REPORT INFORMATION
  Report Type: Spontaneous
  Country: US (occurrence: US)
  Receive Date: 20200724
  Receipt Date: 20200724
  Transmission Date: 20201103
  Serious: Yes (Hospitalization, Other)
  Sender: FDA-Public Use
  Company Number: US-MYLANLABS-2020M1066967

PATIENT
  Age: 11 Year
  Sex: Female
  Weight: 30 kg

DRUGS (16)
  1. ONFI [Interacting]
     Active Substance: CLOBAZAM
     Dosage: 7.5 MILLIGRAM, BID DOSE INCREASED ON INCREASED THE FOLLOWING DAY (0.5 MG/KG/DAY)
     Route: 048
  2. CLONIDINE. [Suspect]
     Active Substance: CLONIDINE
     Indication: PRODUCT USED FOR UNKNOWN INDICATION
     Dosage: 0.2 MG AT BEDTIME
     Route: 065
  3. DIPHENHYDRAMINE. [Interacting]
     Active Substance: DIPHENHYDRAMINE
     Indication: PRODUCT USED FOR UNKNOWN INDICATION
     Dosage: UNK
     Route: 065
  4. VALPROIC ACID. [Suspect]
     Active Substance: VALPROIC ACID
     Indication: SEIZURE
     Dosage: VALPROIC ACID WAS INITIATED 20 MG/KG LOAD
     Route: 048
  5. ONFI [Interacting]
     Active Substance: CLOBAZAM
     Indication: SEIZURE
     Dosage: 0.3 MG/KG/DAY
     Route: 048
  6. CLONAZEPAM. [Concomitant]
     Active Substance: CLONAZEPAM
     Indication: SEIZURE
     Dosage: 0.02 MILLIGRAM/KILOGRAM, QD DIVIDED 3 TIMES A DAY
     Route: 065
  7. LEVETIRACETAM. [Concomitant]
     Active Substance: LEVETIRACETAM
     Indication: SEIZURE
     Dosage: 1200 MILLIGRAM, BID 80 MG/KG/DAY
     Route: 048
  8. GLYCOPYRROLATE                     /00196201/ [Concomitant]
     Active Substance: GLYCOPYRRONIUM
     Dosage: 1.5 MILLIGRAM SCHEDULED 1.5 MG AT NOON AS NEEDED
     Route: 048
  9. MELATONIN [Interacting]
     Active Substance: MELATONIN
     Indication: PRODUCT USED FOR UNKNOWN INDICATION
     Dosage: 3 MILLIGRAM, QD AT BEDTIME
     Route: 048
  10. LORAZEPAM. [Concomitant]
     Active Substance: LORAZEPAM
     Indication: ANXIETY
     Dosage: 2 MILLIGRAM 2 MG EVERY 4?6 HOURS AS NEEDED FOR ANXIETY
     Route: 048
  11. LORATADINE. [Interacting]
     Active Substance: LORATADINE
     Indication: PRODUCT USED FOR UNKNOWN INDICATION
     Dosage: 10 MILLIGRAM, QD
     Route: 048
  12. BACLOFEN. [Concomitant]
     Active Substance: BACLOFEN
     Indication: PRODUCT USED FOR UNKNOWN INDICATION
     Dosage: 1051 MICROGRAM, QD BACLOFEN 1051 MCG/DAY BY PUMP
     Route: 065
  13. GLYCOPYRROLATE                     /00196201/ [Concomitant]
     Active Substance: GLYCOPYRRONIUM
     Indication: PRODUCT USED FOR UNKNOWN INDICATION
     Dosage: 1 MILLIGRAM SCHEDULED AT 1 MG IN THE MORNING AND 1 MG AT BEDTIME AS NEEDED
     Route: 048
  14. VALPROIC ACID. [Suspect]
     Active Substance: VALPROIC ACID
     Dosage: 200 MILLIGRAM, TID FOLLOWED BY 200MG TID
     Route: 048
  15. ONFI [Interacting]
     Active Substance: CLOBAZAM
     Dosage: 10 MILLIGRAM, BID TWO DAYS LATER THE DOSE WAS AGAIN INCREASED TO 10 MG TWICE A DAY (0.7 MG/KG/DAY)
     Route: 048
  16. LORAZEPAM. [Concomitant]
     Active Substance: LORAZEPAM
     Indication: SEIZURE
     Dosage: 1 MILLIGRAM 0.03 MG/KG/DOSE AT BEDTIME
     Route: 048

REACTIONS (4)
  - Drug interaction [Recovered/Resolved]
  - Oxygen saturation decreased [Unknown]
  - Bradycardia [Unknown]
  - Hypersomnia [Recovered/Resolved]
